FAERS Safety Report 7321854-5 (Version None)
Quarter: 2011Q1

REPORT INFORMATION
  Report Type: 
  Country: None (occurrence: None)
  Receive Date: 20110228
  Receipt Date: 20110215
  Transmission Date: 20110831
  Serious: Yes (Other)
  Sender: FDA-Public Use
  Company Number: PHHY2011IE12348

PATIENT
  Age: 73 Year
  Sex: Female

DRUGS (7)
  1. PLAVIX [Concomitant]
  2. ZOLPIDEM [Concomitant]
  3. XANAX [Concomitant]
     Dosage: 250 MG, UNK
  4. IDEOS [Concomitant]
  5. CENTYL K [Concomitant]
  6. LIPITOR [Concomitant]
  7. AMOCLAV DUO [Suspect]
     Dosage: 1 TABLET BID
     Route: 048
     Dates: start: 20110120, end: 20110120

REACTIONS (2)
  - MUSCLE SPASMS [None]
  - PAIN [None]
